FAERS Safety Report 23889199 (Version 1)
Quarter: 2024Q2

REPORT INFORMATION
  Report Type: Spontaneous
  Country: US (occurrence: None)
  Receive Date: 20240523
  Receipt Date: 20240523
  Transmission Date: 20240716
  Serious: Yes (Other)
  Sender: FDA-Public Use
  Company Number: None

PATIENT
  Sex: Female
  Weight: 53.5 kg

DRUGS (1)
  1. CARBOPLATIN [Suspect]
     Active Substance: CARBOPLATIN
     Dosage: 560 MG ONCE INTRAVENOUS ?
     Route: 042

REACTIONS (5)
  - Flushing [None]
  - Erythema [None]
  - Heart rate increased [None]
  - Dizziness [None]
  - Infusion related reaction [None]
